FAERS Safety Report 7991555-9 (Version None)
Quarter: 2011Q4

REPORT INFORMATION
  Report Type: 
  Country: None (occurrence: None)
  Receive Date: 20111219
  Receipt Date: 20111214
  Transmission Date: 20120403
  Serious: Yes (Hospitalization, Other)
  Sender: FDA-Public Use
  Company Number: JP-PFIZER INC-2011122795

PATIENT
  Age: 57 Year
  Sex: Male
  Weight: 66 kg

DRUGS (12)
  1. RABEPRAZOLE SODIUM [Concomitant]
     Dosage: 10 MG, 1X/DAY
     Route: 048
  2. SULFAMETHOXAZOLE AND TRIMETHOPRIM [Concomitant]
     Dosage: 1 G, 1X/DAY
     Route: 048
  3. LASIX [Concomitant]
     Dosage: 40 MG, 1X/DAY
     Route: 048
  4. PURSENNID [Concomitant]
     Dosage: 12 MG, 1X/DAY
     Route: 048
  5. LYRICA [Suspect]
     Indication: PAIN IN EXTREMITY
     Dosage: 75 MG, 2X/DAY
     Route: 048
     Dates: start: 20110314, end: 20110518
  6. CEFAZOLIN SODIUM [Concomitant]
     Dosage: 1 G, 3X/DAY
     Route: 048
  7. NEORAL [Concomitant]
     Dosage: 10 MG, 1X/DAY
     Route: 048
  8. PREDNISOLONE [Concomitant]
     Dosage: 4 MG, 1X/DAY
     Route: 048
  9. ALDACTONE [Concomitant]
     Dosage: 50 MG, 1X/DAY
     Route: 048
  10. LYRICA [Suspect]
     Indication: NEURALGIA
  11. URSO 250 [Concomitant]
     Dosage: THRICE DAILY
     Route: 048
  12. LYRICA [Suspect]
     Indication: ABDOMINAL PAIN

REACTIONS (3)
  - ASCITES [None]
  - INAPPROPRIATE ANTIDIURETIC HORMONE SECRETION [None]
  - ACUTE MYELOID LEUKAEMIA RECURRENT [None]
